FAERS Safety Report 5900357-6 (Version None)
Quarter: 2008Q3

REPORT INFORMATION
  Report Type: 
  Country: None (occurrence: None)
  Receive Date: 20080926
  Receipt Date: 20080923
  Transmission Date: 20090109
  Serious: Yes (Other)
  Sender: FDA-Public Use
  Company Number: US-PFIZER INC-2008028719

PATIENT
  Sex: Male
  Weight: 101.6 kg

DRUGS (8)
  1. SILDENAFIL CITRATE [Suspect]
     Indication: PULMONARY HYPERTENSION
     Route: 048
     Dates: start: 20080109, end: 20080225
  2. SILDENAFIL CITRATE [Suspect]
     Route: 048
     Dates: start: 20080225, end: 20080324
  3. SILDENAFIL CITRATE [Suspect]
     Route: 048
     Dates: start: 20080324, end: 20080401
  4. LOVENOX [Concomitant]
     Route: 058
     Dates: start: 20080107
  5. WARFARIN SODIUM [Concomitant]
     Indication: SICKLE CELL ANAEMIA
     Route: 048
     Dates: start: 20071003, end: 20080401
  6. WARFARIN SODIUM [Concomitant]
     Route: 048
     Dates: start: 20080402, end: 20080907
  7. WARFARIN SODIUM [Concomitant]
     Route: 048
     Dates: start: 20080908, end: 20080914
  8. WARFARIN SODIUM [Concomitant]
     Dosage: TEXT:5 MG ALTERNATING 6 MG-FREQ:ONCE DAILY
     Route: 048
     Dates: start: 20080915

REACTIONS (1)
  - VITREOUS HAEMORRHAGE [None]
